FAERS Safety Report 6087916-8 (Version None)
Quarter: 2009Q1

REPORT INFORMATION
  Report Type: 
  Country: None (occurrence: None)
  Receive Date: 20090219
  Receipt Date: 20090219
  Transmission Date: 20090719
  Serious: No
  Sender: FDA-Public Use
  Company Number: None

PATIENT
  Age: 60 Year
  Sex: Male
  Weight: 81.6475 kg

DRUGS (7)
  1. QUETIAPINE FUMARATE [Suspect]
     Dosage: 37.5MG SCHED +50MG PRN PO
     Route: 048
  2. CITALOPRAM HYDROBROMIDE [Concomitant]
  3. ESCITALOPRAM [Concomitant]
  4. BUSPIRONE HCL [Concomitant]
  5. LORAZEPAM [Concomitant]
  6. OXYCODONE [Concomitant]
  7. MOM [Concomitant]

REACTIONS (1)
  - AGITATION [None]
